FAERS Safety Report 5076974-5 (Version None)
Quarter: 2006Q3

REPORT INFORMATION
  Report Type: 
  Country: None (occurrence: None)
  Receive Date: 20060810
  Receipt Date: 20060718
  Transmission Date: 20061208
  Serious: Yes (Hospitalization, Disabling)
  Sender: FDA-Public Use
  Company Number: FR-GLAXOSMITHKLINE-B0431431A

PATIENT
  Age: 78 Year
  Sex: Female
  Weight: 61 kg

DRUGS (13)
  1. ZOPHREN [Suspect]
     Indication: NAUSEA
     Dosage: 1UNIT CYCLIC
     Route: 042
     Dates: start: 20050616
  2. RANIPLEX [Suspect]
     Route: 042
     Dates: start: 20050616
  3. POLARAMINE [Suspect]
     Route: 042
     Dates: start: 20050616
  4. SOLU-MEDROL [Suspect]
     Route: 042
     Dates: start: 20050616
  5. GEMZAR [Suspect]
     Indication: BREAST CANCER
     Route: 042
     Dates: start: 20050817, end: 20060510
  6. NITRODERM [Concomitant]
     Route: 065
  7. DIFFU-K [Concomitant]
     Route: 065
  8. DIGOXIN [Concomitant]
     Route: 065
  9. OMEPRAZOLE [Concomitant]
     Route: 065
  10. FUROSEMIDE [Concomitant]
     Route: 065
  11. ENDOTELON [Concomitant]
     Route: 065
  12. TRIMETAZIDINE [Concomitant]
     Route: 065
  13. NAVELBINE [Concomitant]
     Indication: BREAST CANCER
     Route: 065

REACTIONS (4)
  - CARDIAC FAILURE [None]
  - DYSPNOEA [None]
  - OBSTRUCTIVE AIRWAYS DISORDER [None]
  - RESTRICTIVE PULMONARY DISEASE [None]
